FAERS Safety Report 22200777 (Version 2)
Quarter: 2023Q4

REPORT INFORMATION
  Report Type: Report from Study
  Country: CA (occurrence: CA)
  Receive Date: 20230412
  Receipt Date: 20231010
  Transmission Date: 20240110
  Serious: Yes (Other)
  Sender: FDA-Public Use
  Company Number: CA-002147023-NVSC2021CA178726

PATIENT
  Age: 70 Year
  Sex: Female

DRUGS (5)
  1. COSENTYX [Suspect]
     Active Substance: SECUKINUMAB
     Indication: Psoriasis
     Dosage: 300 MG
     Route: 058
     Dates: start: 20200925, end: 202010
  2. COSENTYX [Suspect]
     Active Substance: SECUKINUMAB
     Dosage: 300 MG
     Route: 058
     Dates: start: 202010
  3. CYCLOCORT [Concomitant]
     Active Substance: AMCINONIDE
     Indication: Product used for unknown indication
     Dosage: UNK
     Route: 065
     Dates: start: 20210519, end: 20220130
  4. LYDERM [Concomitant]
     Indication: Product used for unknown indication
     Dosage: UNK
     Route: 065
     Dates: start: 20220130, end: 202207
  5. DESONIDE [Concomitant]
     Active Substance: DESONIDE
     Indication: Product used for unknown indication
     Dosage: UNK
     Route: 065
     Dates: start: 20220808

REACTIONS (8)
  - Psoriatic arthropathy [Recovered/Resolved]
  - Cellulitis [Recovered/Resolved]
  - Onychomycosis [Recovered/Resolved]
  - Herpes zoster [Recovered/Resolved with Sequelae]
  - Actinic keratosis [Recovered/Resolved]
  - Vulvovaginitis [Recovering/Resolving]
  - Actinic keratosis [Recovered/Resolved]
  - Injection site reaction [Recovered/Resolved]

NARRATIVE: CASE EVENT DATE: 20201123
